FAERS Safety Report 8901951 (Version 1)
Quarter: 2012Q4

REPORT INFORMATION
  Report Type: Spontaneous
  Country: US (occurrence: None)
  Receive Date: 20121109
  Receipt Date: 20121109
  Transmission Date: 20130627
  Serious: Yes (Hospitalization, Other)
  Sender: FDA-Public Use
  Company Number: None

PATIENT
  Age: 19 Year
  Sex: Male
  Weight: 79.38 kg

DRUGS (1)
  1. TAMIFLU 75MG CAPSULES - GENENTECH [Suspect]
     Indication: FLU
     Dosage: 1 twice daily 5 days Mouth
     Route: 048
     Dates: start: 20120317, end: 20120319

REACTIONS (6)
  - Vomiting [None]
  - Swollen tongue [None]
  - Lip swelling [None]
  - Oedema mouth [None]
  - Dyspnoea [None]
  - Chest discomfort [None]
